FAERS Safety Report 16274127 (Version 1)
Quarter: 2019Q2

REPORT INFORMATION
  Report Type: Spontaneous
  Country: CN (occurrence: CN)
  Receive Date: 20190504
  Receipt Date: 20190504
  Transmission Date: 20190711
  Serious: Yes (Other)
  Sender: FDA-Public Use
  Company Number: CN-ROCHE-2305592

PATIENT
  Age: 67 Year
  Sex: Male

DRUGS (5)
  1. OXALIPLATIN. [Concomitant]
     Active Substance: OXALIPLATIN
     Indication: COLON CANCER
     Route: 065
     Dates: start: 201609, end: 201703
  2. IRINOTECAN [Concomitant]
     Active Substance: IRINOTECAN
     Indication: COLON CANCER
     Route: 065
     Dates: start: 201705, end: 201706
  3. 5-FLUOROURACIL [FLUOROURACIL] [Concomitant]
     Active Substance: FLUOROURACIL
     Indication: COLON CANCER
     Route: 065
     Dates: start: 20180414
  4. CALCIUM FOLINATE [Concomitant]
     Active Substance: LEUCOVORIN CALCIUM
     Indication: COLON CANCER
     Route: 065
     Dates: start: 201705, end: 201706
  5. XELODA [Suspect]
     Active Substance: CAPECITABINE
     Indication: COLON CANCER
     Route: 065
     Dates: start: 201609, end: 201703

REACTIONS (10)
  - Lymphadenopathy [Unknown]
  - Pulmonary fibrosis [Unknown]
  - Pneumonitis [Unknown]
  - Prostatic calcification [Unknown]
  - Biliary dilatation [Unknown]
  - Purulence [Unknown]
  - Benign prostatic hyperplasia [Unknown]
  - Renal cyst [Unknown]
  - Bone formation increased [Unknown]
  - Pelvic fluid collection [Unknown]

NARRATIVE: CASE EVENT DATE: 20180228
